FAERS Safety Report 4701205-2 (Version None)
Quarter: 2005Q2

REPORT INFORMATION
  Report Type: 
  Country: None (occurrence: None)
  Receive Date: 20050113
  Receipt Date: 20050113
  Transmission Date: 20051028
  Serious: Yes (Other)
  Sender: FDA-Public Use
  Company Number: None

PATIENT
  Sex: Female
  Weight: 58.5 kg

DRUGS (6)
  1. KLONOPIN [Suspect]
     Indication: CONVULSION
     Dosage: TID PO
     Route: 048
  2. CTG [Concomitant]
  3. VPA [Concomitant]
  4. FBM [Concomitant]
  5. LEV [Concomitant]
  6. VNS [Concomitant]

REACTIONS (2)
  - CONVULSION [None]
  - THERAPEUTIC RESPONSE UNEXPECTED WITH DRUG SUBSTITUTION [None]
